FAERS Safety Report 18762265 (Version 1)
Quarter: 2021Q1

REPORT INFORMATION
  Report Type: Spontaneous
  Country: US (occurrence: US)
  Receive Date: 20210120
  Receipt Date: 20210120
  Transmission Date: 20210419
  Serious: No
  Sender: FDA-Public Use
  Company Number: US-BIODELIVERY SCIENCES INTERNATIONAL-2020BDSI0746

PATIENT
  Age: 49 Year
  Sex: Female
  Weight: 99.88 kg

DRUGS (6)
  1. BUPRENORPHINE. [Suspect]
     Active Substance: BUPRENORPHINE
     Indication: PAIN
     Route: 002
     Dates: start: 202005, end: 202007
  2. GABAPENTIN. [Concomitant]
     Active Substance: GABAPENTIN
     Indication: PAIN
     Route: 065
     Dates: start: 2018
  3. NO DRUG NAME [Concomitant]
     Active Substance: UNSPECIFIED INGREDIENT
     Indication: PAIN
     Dosage: UNKNOWN; UNKNOWN
     Route: 008
     Dates: start: 202009, end: 202009
  4. BUPRENORPHINE. [Suspect]
     Active Substance: BUPRENORPHINE
     Route: 002
     Dates: start: 202007, end: 202009
  5. BUPRENORPHINE. [Suspect]
     Active Substance: BUPRENORPHINE
     Route: 002
     Dates: start: 202009, end: 202011
  6. BUPRENORPHINE. [Suspect]
     Active Substance: BUPRENORPHINE
     Route: 002
     Dates: start: 202011

REACTIONS (8)
  - Incorrect route of product administration [Recovered/Resolved]
  - Product physical consistency issue [Unknown]
  - Product communication issue [Recovered/Resolved]
  - Product adhesion issue [Unknown]
  - Wrong technique in product usage process [Recovered/Resolved]
  - Product solubility abnormal [Unknown]
  - Incorrect dose administered by product [Unknown]
  - Oral administration complication [Unknown]

NARRATIVE: CASE EVENT DATE: 202005
